FAERS Safety Report 6189484-9 (Version None)
Quarter: 2009Q2

REPORT INFORMATION
  Report Type: 
  Country: None (occurrence: None)
  Receive Date: 20090512
  Receipt Date: 20090512
  Transmission Date: 20091009
  Serious: Yes (Life-Threatening, Hospitalization, Other)
  Sender: FDA-Public Use
  Company Number: None

PATIENT
  Age: 61 Year
  Sex: Male
  Weight: 108.8633 kg

DRUGS (1)
  1. LISINOPRIL [Suspect]

REACTIONS (3)
  - ABASIA [None]
  - ANAPHYLACTIC SHOCK [None]
  - MEMORY IMPAIRMENT [None]
